FAERS Safety Report 23611423 (Version 1)
Quarter: 2024Q1

REPORT INFORMATION
  Report Type: Report from Study
  Country: US (occurrence: US)
  Receive Date: 20240308
  Receipt Date: 20240308
  Transmission Date: 20240409
  Serious: No
  Sender: FDA-Public Use
  Company Number: US-ALXN-202403USA000078US

PATIENT
  Sex: Female

DRUGS (1)
  1. STRENSIQ [Suspect]
     Active Substance: ASFOTASE ALFA
     Indication: Product used for unknown indication
     Dosage: 55 MILLIGRAM, TIW
     Route: 065
     Dates: start: 20240226

REACTIONS (2)
  - Muscular weakness [Unknown]
  - Gene mutation [Unknown]

NARRATIVE: CASE EVENT DATE: 20240226
